FAERS Safety Report 9486456 (Version 1)
Quarter: 2013Q3

REPORT INFORMATION
  Report Type: Spontaneous
  Country: US (occurrence: None)
  Receive Date: 20130827
  Receipt Date: 20130827
  Transmission Date: 20140515
  Serious: Yes (Other)
  Sender: FDA-Public Use
  Company Number: None

PATIENT
  Age: 37 Year
  Sex: Male
  Weight: 122.47 kg

DRUGS (2)
  1. LANZOPRAZOLE [Suspect]
     Indication: DRUG THERAPY
     Dosage: ONCE DAILY TAKEN BY MOUTH
     Route: 048
  2. LANZOPRAZOLE [Suspect]
     Indication: DRUG THERAPY
     Dosage: 1 CAP ONCE DAILY TAKEN BY MOUTH
     Route: 048
     Dates: start: 20110923, end: 20130923

REACTIONS (2)
  - Product packaging quantity issue [None]
  - No adverse event [None]
